FAERS Safety Report 19589853 (Version 2)
Quarter: 2021Q4

REPORT INFORMATION
  Report Type: Spontaneous
  Country: US (occurrence: US)
  Receive Date: 20210721
  Receipt Date: 20211029
  Transmission Date: 20220303
  Serious: No
  Sender: FDA-Public Use
  Company Number: US-IGSA-BIG0014913

PATIENT
  Sex: Female
  Weight: 81.09 kg

DRUGS (22)
  1. XEMBIFY [Suspect]
     Active Substance: HUMAN IMMUNOGLOBULIN G
     Indication: Immunodeficiency common variable
     Dosage: 32 GRAM, Q.2WK.
     Route: 058
     Dates: start: 20210121
  2. XEMBIFY [Suspect]
     Active Substance: HUMAN IMMUNOGLOBULIN G
     Dosage: 32 GRAM, Q.2WK.
     Route: 058
     Dates: start: 20210408
  3. XEMBIFY [Suspect]
     Active Substance: HUMAN IMMUNOGLOBULIN G
     Dosage: 32 GRAM, Q.2WK.
     Route: 058
     Dates: start: 20210408
  4. XEMBIFY [Suspect]
     Active Substance: HUMAN IMMUNOGLOBULIN G
     Dosage: 32 GRAM, Q.2WK.
     Route: 058
     Dates: start: 20210408
  5. XEMBIFY [Suspect]
     Active Substance: HUMAN IMMUNOGLOBULIN G
     Dosage: 32 GRAM, Q.2WK.
     Route: 058
     Dates: start: 20210422
  6. XEMBIFY [Suspect]
     Active Substance: HUMAN IMMUNOGLOBULIN G
     Dosage: 32 GRAM, Q.2WK.
     Route: 058
     Dates: start: 20210505
  7. XEMBIFY [Suspect]
     Active Substance: HUMAN IMMUNOGLOBULIN G
     Dosage: 32 GRAM, Q.2WK.
     Route: 058
     Dates: start: 20210505
  8. XEMBIFY [Suspect]
     Active Substance: HUMAN IMMUNOGLOBULIN G
     Dosage: 32 GRAM, Q.2WK.
     Route: 058
     Dates: start: 20210519
  9. ZYRTEC [Concomitant]
     Active Substance: CETIRIZINE HYDROCHLORIDE
     Indication: Premedication
     Dosage: 10 MILLIGRAM
  10. BENADRYL [Concomitant]
     Active Substance: DIPHENHYDRAMINE HYDROCHLORIDE
     Indication: Premedication
     Dosage: 25 MILLIGRAM
  11. PULMICORT FLEXHALER [Concomitant]
     Active Substance: BUDESONIDE
     Dosage: 180 MCG/ACT (2 INHALATIONS QD)
  12. MONTELUKAST [Concomitant]
     Active Substance: MONTELUKAST SODIUM
     Dosage: 1 TABLET EVERY EVENING
     Route: 048
  13. PROAIR RESPICLICK [Concomitant]
     Active Substance: ALBUTEROL SULFATE
     Dosage: 108 (90) BASE) MCG/ACT INH AEPB (2 INHALATIONS EVERY 4 HOURS, PRN
  14. LEVALBUTEROL HYDROCHLORIDE [Concomitant]
     Active Substance: LEVALBUTEROL HYDROCHLORIDE
     Dosage: 1.25 MG/3 ML INHALATION NEBULIZATION SOLUTION (1 VIAL VIA NEBULIZER EVERY 4-6 HOURS, PRN
  15. FLONASE ALLERGY RELIEF [Concomitant]
     Active Substance: FLUTICASONE PROPIONATE
     Dosage: 2 SPRAYS IN EACH NOSTRIL, QD
     Route: 045
  16. ZYRTEC [Concomitant]
     Active Substance: CETIRIZINE HYDROCHLORIDE
     Dosage: 10 MILLIGRAM, QD
     Route: 048
  17. PREVACID [Concomitant]
     Active Substance: LANSOPRAZOLE
     Dosage: 1 TABLET AT BREAKFAST, 1/2 TAB AT BEDTIME
     Route: 048
  18. TUMS EX [Concomitant]
     Active Substance: CALCIUM CARBONATE
     Dosage: UNK UNK, PRN
  19. ZOLOFT [Concomitant]
     Active Substance: SERTRALINE HYDROCHLORIDE
     Dosage: 100 MILLIGRAM, QD
     Route: 048
  20. OLOPATADINE HYDROCHLORIDE [Concomitant]
     Active Substance: OLOPATADINE HYDROCHLORIDE
     Dosage: 1?2 SPRAYS IN EACH NOSTRIL
     Route: 045
  21. LEVALBUTEROL TARTRATE [Concomitant]
     Active Substance: LEVALBUTEROL TARTRATE
     Dosage: 45 MCG/ACT INH (2?3 INHALATIONS EVERY 4?6 HOURS, PRN
  22. BUDESONIDE [Concomitant]
     Active Substance: BUDESONIDE
     Dosage: 0.5 MG/2 ML INH SUSPENSION (1 RESPULE NEBULIZED BID)

REACTIONS (4)
  - Infusion site pain [Recovered/Resolved]
  - Infusion site erythema [Recovered/Resolved]
  - Infusion site swelling [Recovered/Resolved]
  - Infusion site inflammation [Recovered/Resolved]
